FAERS Safety Report 19867766 (Version 1)
Quarter: 2021Q3

REPORT INFORMATION
  Report Type: Spontaneous
  Country: US (occurrence: US)
  Receive Date: 20210922
  Receipt Date: 20210922
  Transmission Date: 20211014
  Serious: No
  Sender: FDA-Public Use
  Company Number: US-TEVA-2021-US-1946485

PATIENT
  Age: 43 Year
  Sex: Male

DRUGS (1)
  1. METHYLPREDNISOLONE ACETATE. [Suspect]
     Active Substance: METHYLPREDNISOLONE ACETATE
     Indication: ARTHRALGIA
     Route: 065
     Dates: start: 20210808

REACTIONS (2)
  - Therapeutic product effect variable [Unknown]
  - Recalled product administered [Unknown]

NARRATIVE: CASE EVENT DATE: 20210808
